FAERS Safety Report 22005226 (Version 3)
Quarter: 2023Q1

REPORT INFORMATION
  Report Type: Spontaneous
  Country: US (occurrence: US)
  Receive Date: 20230217
  Receipt Date: 20230222
  Transmission Date: 20230417
  Serious: No
  Sender: FDA-Public Use
  Company Number: US-SA-SAC20230216000744

PATIENT
  Age: 56 Year
  Sex: Female
  Weight: 77.1 kg

DRUGS (12)
  1. DUPIXENT [Suspect]
     Active Substance: DUPILUMAB
     Indication: Neoplasm skin
     Dosage: 300 MG, QW
     Route: 058
     Dates: start: 20230112
  2. DUPIXENT [Suspect]
     Active Substance: DUPILUMAB
     Indication: Eosinophilic oesophagitis
     Dosage: 300 MG, QOW
     Dates: start: 2023
  3. PNEUMOVAX 23 [Concomitant]
     Active Substance: PNEUMOCOCCAL VACCINE, POLYVALENT 23
  4. VARIVAX [AESCULUS HIPPOCASTANUM] [Concomitant]
  5. PROGESTERONE [Concomitant]
     Active Substance: PROGESTERONE
  6. LOSARTAN [Concomitant]
     Active Substance: LOSARTAN
  7. MONTELUKAST [Concomitant]
     Active Substance: MONTELUKAST SODIUM
  8. ALPRAZOLAM [Concomitant]
     Active Substance: ALPRAZOLAM
  9. VALACYCLOVIR [Concomitant]
     Active Substance: VALACYCLOVIR HYDROCHLORIDE
  10. OMEPRAZOLE [Concomitant]
     Active Substance: OMEPRAZOLE
  11. FLUCELVAX QUAD [Concomitant]
  12. COVID-19 VACCINE [Concomitant]

REACTIONS (6)
  - Injection site pain [Unknown]
  - Injection site erythema [Unknown]
  - Oral herpes [Unknown]
  - Inappropriate schedule of product administration [Unknown]
  - Product use in unapproved indication [Unknown]
  - Accidental exposure to product [Unknown]

NARRATIVE: CASE EVENT DATE: 20230101
